FAERS Safety Report 4648849-4 (Version None)
Quarter: 2005Q2

REPORT INFORMATION
  Report Type: 
  Country: None (occurrence: None)
  Receive Date: 20050427
  Receipt Date: 20050413
  Transmission Date: 20051028
  Serious: Yes (Death)
  Sender: FDA-Public Use
  Company Number: 2005-00137

PATIENT
  Age: 68 Year
  Sex: Female
  Weight: 69 kg

DRUGS (15)
  1. VELCADE [Suspect]
     Indication: MULTIPLE MYELOMA
     Dosage: 1.20 MG, IV BOLUS
     Route: 040
     Dates: start: 20050124, end: 20050124
  2. DURAGESIC (FENTANYL) PATCH [Concomitant]
  3. PRANDIN   NOVO NORDISK  (REPAGLINIDE) [Concomitant]
  4. PHOSLO [Concomitant]
  5. AVAPRO [Concomitant]
  6. NORVASC [Concomitant]
  7. CARDURA [Concomitant]
  8. LOPERAMIDE [Concomitant]
  9. QUININE SULFATE [Concomitant]
  10. SODIUM BICARBONATE IN PLASTIC CONTAINER [Concomitant]
  11. ZOMETA [Concomitant]
  12. PROTEIN SUPPLEMENTS POWDER (EXCEPT [DPO]) [Concomitant]
  13. MULTIVITAMIN [Concomitant]
  14. ERYTHROPOIETIN (ERYTHROPOIETIN) [Concomitant]
  15. ZITHROMAX [Concomitant]

REACTIONS (7)
  - ASTHENIA [None]
  - DISEASE PROGRESSION [None]
  - FALL [None]
  - FATIGUE [None]
  - LOSS OF CONSCIOUSNESS [None]
  - MULTIPLE MYELOMA [None]
  - TREMOR [None]
